FAERS Safety Report 5428430-X (Version None)
Quarter: 2007Q3

REPORT INFORMATION
  Report Type: 
  Country: None (occurrence: None)
  Receive Date: 20070823
  Receipt Date: 20070816
  Transmission Date: 20080115
  Serious: Yes (Other)
  Sender: FDA-Public Use
  Company Number: 2007-03823

PATIENT
  Age: 34 Year
  Sex: Male

DRUGS (3)
  1. METHYLPREDNISOLONE ACETATE [Suspect]
     Indication: MULTIPLE SCLEROSIS
     Dosage: 1 G, DAILY X 5 DAYS, INTRAVENOUS; 1 G, MONTHLY, INTRAVENOUS
     Route: 042
     Dates: start: 20020101, end: 20020101
  2. METHYLPREDNISOLONE ACETATE [Suspect]
     Indication: MULTIPLE SCLEROSIS
     Dosage: 1 G, DAILY X 5 DAYS, INTRAVENOUS; 1 G, MONTHLY, INTRAVENOUS
     Route: 042
     Dates: start: 20020101, end: 20020101
  3. GLATIRAMER (GLATIRAMER) [Concomitant]

REACTIONS (1)
  - HEPATIC NECROSIS [None]
